FAERS Safety Report 21623165 (Version 1)
Quarter: 2022Q4

REPORT INFORMATION
  Report Type: Spontaneous
  Country: US (occurrence: US)
  Receive Date: 20221121
  Receipt Date: 20221121
  Transmission Date: 20230112
  Serious: No
  Sender: FDA-Public Use
  Company Number: US-BRISTOL-MYERS SQUIBB COMPANY-2022-135145

PATIENT
  Age: 32 Year
  Sex: Female

DRUGS (2)
  1. ONUREG [Suspect]
     Active Substance: AZACITIDINE
     Indication: Acute myeloid leukaemia
     Dosage: 14/28 DAYS, QD ON DAYS 1-14 OF EACH 28-DAY TREATMENT CYCLE
     Route: 065
  2. ONUREG [Suspect]
     Active Substance: AZACITIDINE
     Dosage: 14/28 DAYS, QD ON DAYS 1-14 OF EACH 28-DAY TREATMENT CYCLE
     Route: 065

REACTIONS (4)
  - Nausea [Unknown]
  - Decreased appetite [Unknown]
  - Vomiting [Unknown]
  - Abdominal pain [Unknown]

NARRATIVE: CASE EVENT DATE: 20220701
